FAERS Safety Report 6275891-2 (Version None)
Quarter: 2009Q3

REPORT INFORMATION
  Report Type: 
  Country: None (occurrence: None)
  Receive Date: 20090720
  Receipt Date: 20090706
  Transmission Date: 20100115
  Serious: Yes (Other)
  Sender: FDA-Public Use
  Company Number: 1022556-2009-00045

PATIENT
  Sex: Female

DRUGS (1)
  1. SELSUN BLUE SHAMPOO [Suspect]
     Indication: DANDRUFF
     Dosage: 2 WASHINGS, TOPICAL
     Route: 061

REACTIONS (1)
  - ALOPECIA [None]
